FAERS Safety Report 7199572-6 (Version None)
Quarter: 2010Q4

REPORT INFORMATION
  Report Type: 
  Country: None (occurrence: None)
  Receive Date: 20101228
  Receipt Date: 20101207
  Transmission Date: 20110411
  Serious: No
  Sender: FDA-Public Use
  Company Number: US-B.I. PHARMACEUTICALS,INC./RIDGEFIELD-2010-BP-14103BP

PATIENT
  Age: 89 Year
  Sex: Female

DRUGS (14)
  1. PRADAXA [Suspect]
     Indication: ATRIAL FIBRILLATION
     Dosage: 300 MG
     Route: 048
     Dates: start: 20101101
  2. CALCIUM [Concomitant]
     Indication: PROPHYLAXIS
  3. PRIMIDONE [Concomitant]
     Indication: SLEEP DISORDER
  4. ZOLOFT [Concomitant]
     Indication: DEPRESSION
  5. VIT B [Concomitant]
     Indication: PROPHYLAXIS
  6. VIT 6 [Concomitant]
     Indication: PROPHYLAXIS
  7. DEMINEX [Concomitant]
     Indication: DIURETIC THERAPY
  8. TRAMADOL [Concomitant]
     Indication: PAIN
     Dosage: 50 MG
  9. ATIVAN [Concomitant]
     Indication: ANXIETY
     Dosage: 1 MG
  10. ATIVAN [Concomitant]
     Indication: PANIC ATTACK
  11. VIT C [Concomitant]
     Indication: PROPHYLAXIS
  12. POTASSIUM CHLORIDE [Concomitant]
     Indication: MINERAL SUPPLEMENTATION
  13. SYNTHROID [Concomitant]
     Indication: THYROID DISORDER
  14. NITROGLYCERIN [Concomitant]

REACTIONS (3)
  - DIZZINESS [None]
  - NAUSEA [None]
  - PRURITUS [None]
